FAERS Safety Report 10380536 (Version 1)
Quarter: 2014Q1

REPORT INFORMATION
  Report Type: Spontaneous
  Country: US (occurrence: None)
  Receive Date: 20140306
  Receipt Date: 20140306
  Transmission Date: 20141002
  Serious: Yes (Other)
  Sender: FDA-Public Use
  Company Number: 163-21880-13100161

PATIENT
  Age: 84 Year
  Sex: Female
  Weight: 67 kg

DRUGS (11)
  1. REVLIMID (LENALIDOMIDE) (25 MILLIGRAM, CAPSULES) [Suspect]
     Indication: PLASMA CELL MYELOMA
     Route: 048
     Dates: start: 200906
  2. DIOVAN (VALSARTAN) [Concomitant]
  3. HYDROCODONE-ACETAMINOPHEN (VICODIN) [Concomitant]
  4. CEPHALEXIN (CEFALEXIN) [Concomitant]
  5. SIMVASTATIN [Concomitant]
  6. METOPROLOL SUCCINATE ER [Concomitant]
  7. ASPIRIN (ACETYLSALICYLIC ACID) [Concomitant]
  8. OXYBUTYNIN [Concomitant]
  9. MELATONIN [Concomitant]
  10. VITAMIN D (ERGOCALCIFEROL) [Concomitant]
  11. AMLODIPINE BESYLATE (AMLODIPINE BESILATE) [Concomitant]

REACTIONS (4)
  - Anaemia [None]
  - Musculoskeletal stiffness [None]
  - Fatigue [None]
  - Diarrhoea [None]
